FAERS Safety Report 25504568 (Version 1)
Quarter: 2025Q2

REPORT INFORMATION
  Report Type: Spontaneous
  Country: US (occurrence: None)
  Receive Date: 20250630
  Receipt Date: 20250630
  Transmission Date: 20250717
  Serious: Yes (Other)
  Sender: FDA-CTU
  Company Number: None

PATIENT
  Age: 44 Year
  Sex: Female
  Weight: 110.25 kg

DRUGS (1)
  1. TIRZEPATIDE [Suspect]
     Active Substance: TIRZEPATIDE
     Indication: Weight decreased
     Dosage: DAILY
     Dates: start: 20250606, end: 20250627

REACTIONS (9)
  - Injection related reaction [None]
  - Cellulitis [None]
  - Injection site erythema [None]
  - Injection site swelling [None]
  - Injection site irritation [None]
  - Injection site pruritus [None]
  - Injection site infection [None]
  - Suspected product contamination [None]
  - Product impurity [None]

NARRATIVE: CASE EVENT DATE: 20250606
